FAERS Safety Report 13738395 (Version 1)
Quarter: 2017Q3

REPORT INFORMATION
  Report Type: Spontaneous
  Country: US (occurrence: US)
  Receive Date: 20170710
  Receipt Date: 20170710
  Transmission Date: 20171127
  Serious: No
  Sender: FDA-Public Use
  Company Number: US-009507513-1706USA002885

PATIENT
  Sex: Female

DRUGS (1)
  1. NEXPLANON [Suspect]
     Active Substance: ETONOGESTREL
     Indication: CONTRACEPTION

REACTIONS (10)
  - Impaired healing [Recovered/Resolved]
  - Device difficult to use [Recovered/Resolved]
  - Essential tremor [Recovered/Resolved]
  - Menorrhagia [Recovered/Resolved]
  - Migraine [Recovered/Resolved]
  - Anxiety [Recovered/Resolved]
  - Implant site pain [Recovered/Resolved]
  - Dizziness [Recovered/Resolved]
  - Pain [Recovered/Resolved]
  - Weight increased [Recovered/Resolved]
